FAERS Safety Report 9445216 (Version 4)
Quarter: 2013Q4

REPORT INFORMATION
  Report Type: Spontaneous
  Country: US (occurrence: US)
  Receive Date: 20130807
  Receipt Date: 20131101
  Transmission Date: 20140711
  Serious: Yes (Death, Life-Threatening, Hospitalization, Other)
  Sender: FDA-Public Use
  Company Number: US-ACTELION-A-US2012-68239

PATIENT
  Age: 65 Year
  Sex: Female

DRUGS (19)
  1. TRACLEER [Suspect]
     Indication: PULMONARY ARTERIAL HYPERTENSION
     Dosage: 125 MG, BID
     Route: 048
     Dates: start: 20120406, end: 20131004
  2. TRACLEER [Suspect]
     Dosage: 62.5 MG, BID
     Route: 048
     Dates: start: 20120306
  3. REVATIO [Concomitant]
     Dosage: 20 MG, TID
     Route: 048
  4. OXYGEN [Concomitant]
     Dosage: UNK
  5. ADVAIR [Concomitant]
     Dosage: UNK, Q12HRS
     Route: 055
  6. ALBUTEROL [Concomitant]
     Dosage: UNK, PRN
     Route: 055
  7. AMBIEN [Concomitant]
     Dosage: 10 MG, PER MIN
     Route: 048
  8. AMIODARONE [Concomitant]
     Dosage: 200 MG, BID
  9. ATIVAN [Concomitant]
     Dosage: 2 MG, PRN
     Route: 048
  10. BISCODYL [Concomitant]
     Dosage: 10 MG, PRN
     Route: 054
  11. GABAPENTIN [Concomitant]
     Dosage: 300 MG, BID
  12. METOLAZONE [Concomitant]
     Dosage: 5 MG, UNK
     Route: 048
  13. MIRTAZAPINE [Concomitant]
     Dosage: 30 MG, UNK
     Route: 048
  14. PERCOCET [Concomitant]
     Dosage: 10 MG, PRN
     Route: 048
  15. POTASSIUM CHLORIDE [Concomitant]
     Dosage: 20 MEQ, UNK
     Route: 048
  16. SENOKOT [Concomitant]
     Dosage: 50 MG, BID
     Route: 048
  17. SIMVASTATIN [Concomitant]
     Dosage: 20 MG, UNK
     Route: 048
  18. TORSEMIDE [Concomitant]
     Dosage: 20 MG, UNK
     Route: 048
  19. TRAZODONE [Concomitant]
     Dosage: 100 MG, UNK
     Route: 048

REACTIONS (9)
  - Cardiac failure [Fatal]
  - Fluid retention [Fatal]
  - Renal failure acute [Recovering/Resolving]
  - Delirium [Recovering/Resolving]
  - Oedema [Recovering/Resolving]
  - Deep vein thrombosis [Recovering/Resolving]
  - Vena cava filter insertion [Recovering/Resolving]
  - Humerus fracture [Recovering/Resolving]
  - Fall [Recovering/Resolving]
